FAERS Safety Report 12614162 (Version 1)
Quarter: 2016Q3

REPORT INFORMATION
  Report Type: Spontaneous
  Country: FR (occurrence: FR)
  Receive Date: 20160802
  Receipt Date: 20160802
  Transmission Date: 20161109
  Serious: Yes (Disabling)
  Sender: FDA-Public Use
  Company Number: FR-PFIZER INC-2015272036

PATIENT
  Age: 30 Year
  Sex: Female
  Weight: 50 kg

DRUGS (1)
  1. ARACYTINE [Suspect]
     Active Substance: CYTARABINE

REACTIONS (9)
  - Disturbance in attention [Recovering/Resolving]
  - Tremor [Recovering/Resolving]
  - Hyperhidrosis [Unknown]
  - Asthenia [Unknown]
  - Hypoglycaemia [Unknown]
  - Visual impairment [Recovering/Resolving]
  - Malaise [Unknown]
  - Occupational exposure to product [Unknown]
  - Headache [Recovering/Resolving]

NARRATIVE: CASE EVENT DATE: 2015
